FAERS Safety Report 13923305 (Version 3)
Quarter: 2017Q4

REPORT INFORMATION
  Report Type: Report from Study
  Country: US (occurrence: US)
  Receive Date: 20170831
  Receipt Date: 20171003
  Transmission Date: 20180320
  Serious: Yes (Other)
  Sender: FDA-Public Use
  Company Number: US-009507513-1708USA012132

PATIENT
  Sex: Male

DRUGS (5)
  1. GLIMEPIRIDE. [Suspect]
     Active Substance: GLIMEPIRIDE
     Dosage: UNK
     Dates: start: 201705
  2. METOPROLOL. [Concomitant]
     Active Substance: METOPROLOL
  3. FERROUS SULFATE. [Concomitant]
     Active Substance: FERROUS SULFATE
  4. JANUVIA [Suspect]
     Active Substance: SITAGLIPTIN PHOSPHATE
     Indication: DIABETES MELLITUS
     Dosage: 20 MG, BID
     Route: 048
     Dates: start: 201402, end: 201706
  5. METFORMIN [Concomitant]
     Active Substance: METFORMIN HYDROCHLORIDE

REACTIONS (4)
  - Cardiac pacemaker replacement [Unknown]
  - Product use issue [Unknown]
  - Fatigue [Unknown]
  - Weight increased [Unknown]

NARRATIVE: CASE EVENT DATE: 201402
